FAERS Safety Report 13123340 (Version 1)
Quarter: 2017Q1

REPORT INFORMATION
  Report Type: Spontaneous
  Country: US (occurrence: US)
  Receive Date: 20170117
  Receipt Date: 20170117
  Transmission Date: 20170428
  Serious: No
  Sender: FDA-Public Use
  Company Number: US-TEVA-730214USA

PATIENT
  Sex: Male
  Weight: 163.44 kg

DRUGS (3)
  1. FENTORA [Suspect]
     Active Substance: FENTANYL CITRATE
     Indication: PRODUCT USE ISSUE
  2. FENTANYL TRANSDERMAL SYSTEM [Concomitant]
     Active Substance: FENTANYL
     Indication: PAIN
     Route: 065
  3. FENTORA [Suspect]
     Active Substance: FENTANYL CITRATE
     Indication: PRODUCT USE ISSUE
     Route: 065
     Dates: start: 2014

REACTIONS (4)
  - Pain [Not Recovered/Not Resolved]
  - Weight increased [Unknown]
  - Carpal tunnel syndrome [Not Recovered/Not Resolved]
  - Product use issue [Unknown]

NARRATIVE: CASE EVENT DATE: 2014
